FAERS Safety Report 7378236-X (Version None)
Quarter: 2011Q1

REPORT INFORMATION
  Report Type: 
  Country: None (occurrence: None)
  Receive Date: 20110328
  Receipt Date: 20110319
  Transmission Date: 20110831
  Serious: Yes (Hospitalization)
  Sender: FDA-Public Use
  Company Number: B0692992A

PATIENT
  Age: 52 Year
  Sex: Male

DRUGS (24)
  1. MARAVIROC [Suspect]
     Indication: HIV INFECTION
     Dosage: 600MG TWICE PER DAY
     Route: 048
     Dates: start: 20101118
  2. CHLORPROMAZINE [Concomitant]
     Dates: start: 20100602
  3. BUPROPION HYDROCHLORIDE [Concomitant]
     Dates: start: 20061011
  4. MIRTAZAPINE [Concomitant]
     Dates: start: 20080303
  5. OLMESARTAN MEDOXOMIL [Concomitant]
     Dates: start: 20091211
  6. CEVIMELINE [Concomitant]
     Dates: start: 20080610
  7. ADVAIR DISKUS 100/50 [Concomitant]
     Dates: start: 20080414
  8. FLUTICASONE PROPIONATE [Concomitant]
  9. TADALAFIL [Concomitant]
     Dates: start: 20100806
  10. DEPO-TESTOSTERONE [Concomitant]
     Dates: start: 20101019
  11. CLONIDINE [Concomitant]
     Dates: start: 20101019
  12. NEBIVOLOL [Concomitant]
     Dates: start: 20091211
  13. ESOMEPRAZOLE [Concomitant]
     Dates: start: 20080508
  14. OXYBUTYNIN [Concomitant]
     Dates: start: 20061011
  15. PREGABALIN [Concomitant]
     Dates: start: 20071210
  16. RALTEGRAVIR [Suspect]
  17. ETRAVIRINE [Suspect]
  18. SALBUTAMOL [Concomitant]
     Dates: start: 20091211
  19. LEVOCETIRIZINE DIHYDROCHLORIDE [Concomitant]
     Dates: start: 20090202
  20. ROSUVASTATIN [Concomitant]
     Dates: start: 20080610
  21. ZOFRAN [Concomitant]
  22. FENOFIBRATE [Concomitant]
     Dates: start: 20080610
  23. LEVOTHYROXINE SODIUM [Concomitant]
     Dates: start: 20101019
  24. DECA-DURABOLIN [Concomitant]
     Dates: start: 20090202

REACTIONS (2)
  - BLOOD CREATINE PHOSPHOKINASE INCREASED [None]
  - BLOOD POTASSIUM DECREASED [None]
